FAERS Safety Report 8847189 (Version 6)
Quarter: 2013Q4

REPORT INFORMATION
  Report Type: Report from Study
  Country: US (occurrence: US)
  Receive Date: 20121018
  Receipt Date: 20131223
  Transmission Date: 20140711
  Serious: Yes (Life-Threatening, Hospitalization)
  Sender: FDA-Public Use
  Company Number: US-JNJFOC-20110704644

PATIENT
  Age: 31 Year
  Sex: Male
  Weight: 80.29 kg

DRUGS (8)
  1. HALOPERIDOL [Suspect]
     Indication: SCHIZOPHRENIA
     Route: 048
     Dates: start: 20110630
  2. OLANZAPINE [Concomitant]
     Indication: SCHIZOPHRENIA
     Route: 048
     Dates: end: 20110714
  3. OLANZAPINE [Concomitant]
     Indication: SCHIZOPHRENIA
     Route: 048
     Dates: start: 20110805
  4. OLANZAPINE [Concomitant]
     Indication: SCHIZOPHRENIA
     Route: 048
     Dates: start: 20110715, end: 20110804
  5. SOLU-MEDROL [Concomitant]
     Indication: HYPERSENSITIVITY
     Route: 042
     Dates: start: 20110701, end: 20110701
  6. EPINEPHRINE [Concomitant]
     Indication: HYPERSENSITIVITY
     Route: 042
     Dates: start: 20110701, end: 20110701
  7. ALBUTEROL [Concomitant]
     Indication: HYPERSENSITIVITY
     Route: 055
     Dates: start: 20110701, end: 20110701
  8. PEPCID [Concomitant]
     Indication: GASTRITIS
     Route: 042
     Dates: start: 20110701, end: 20110701

REACTIONS (2)
  - Hypersensitivity [Recovered/Resolved]
  - Dystonia [Recovered/Resolved]
